FAERS Safety Report 8612240-6 (Version None)
Quarter: 2012Q3

REPORT INFORMATION
  Report Type: 
  Country: None (occurrence: None)
  Receive Date: 20120822
  Receipt Date: 20120814
  Transmission Date: 20120928
  Serious: Yes (Other)
  Sender: FDA-Public Use
  Company Number: US-BAYER-2012-060375

PATIENT
  Sex: Female

DRUGS (1)
  1. CLIMARA PRO [Suspect]
     Dosage: UNK
     Route: 062
     Dates: start: 20120201

REACTIONS (8)
  - INSOMNIA [None]
  - DEPRESSION [None]
  - BLADDER PROLAPSE [None]
  - HOT FLUSH [None]
  - APPLICATION SITE REACTION [None]
  - PRODUCT ADHESION ISSUE [None]
  - CRYING [None]
  - SKIN IRRITATION [None]
